FAERS Safety Report 11413716 (Version 3)
Quarter: 2015Q3

REPORT INFORMATION
  Report Type: Spontaneous
  Country: JP (occurrence: JP)
  Receive Date: 20150824
  Receipt Date: 20150930
  Transmission Date: 20151125
  Serious: Yes (Hospitalization, Other)
  Sender: FDA-Public Use
  Company Number: JP-PFIZER INC-2015276185

PATIENT
  Age: 54 Year
  Sex: Female
  Weight: 76 kg

DRUGS (6)
  1. NELUROLEN [Suspect]
     Active Substance: NITRAZEPAM
     Indication: SCHIZOPHRENIA
     Dosage: 5 MG, 1X/DAY
  2. CHAMPIX [Suspect]
     Active Substance: VARENICLINE TARTRATE
     Indication: SMOKING CESSATION THERAPY
     Dosage: 1 MG, 2X/DAY
     Route: 048
     Dates: end: 20150809
  3. LEVOTOMIN [Suspect]
     Active Substance: LEVOMEPROMAZINE
     Indication: SCHIZOPHRENIA
     Dosage: 5 MG, 1X/DAY
  4. TRIPHEDINON [Concomitant]
     Active Substance: TRIHEXYPHENIDYL HYDROCHLORIDE
     Indication: SCHIZOPHRENIA
     Dosage: 2 MG, 1X/DAY
  5. RIZE [Concomitant]
     Active Substance: CLOTIAZEPAM
     Indication: SCHIZOPHRENIA
     Dosage: 5 MG, 3X/DAY
  6. PEROSPIRONE HCL [Suspect]
     Active Substance: PEROSPIRONE HYDROCHLORIDE
     Indication: SCHIZOPHRENIA
     Dosage: 16 MG, 1X/DAY

REACTIONS (6)
  - Gastric mucosal lesion [Unknown]
  - Abnormal behaviour [Unknown]
  - Respiratory tract oedema [Unknown]
  - Mental disorder [Unknown]
  - Suicide attempt [Recovered/Resolved]
  - Oesophagitis [Unknown]

NARRATIVE: CASE EVENT DATE: 201508
